FAERS Safety Report 19518284 (Version 1)
Quarter: 2021Q3

REPORT INFORMATION
  Report Type: Spontaneous
  Country: CN (occurrence: CN)
  Receive Date: 20210712
  Receipt Date: 20210712
  Transmission Date: 20211014
  Serious: Yes (Other)
  Sender: FDA-Public Use
  Company Number: CN-JNJFOC-20210711636

PATIENT
  Age: 15 Day
  Sex: Male
  Weight: 1.2 kg

DRUGS (1)
  1. MOTRIN INFANTS [Suspect]
     Active Substance: IBUPROFEN
     Indication: PATENT DUCTUS ARTERIOSUS
     Dosage: (DILUTED BY 5 TIMES WITH 0.9% SODIUM CHLORIDE, PO), 0.29ML, QD AND DOSE REDUCED TO 5 MG/KG
     Route: 048
     Dates: start: 20210621, end: 20210623

REACTIONS (3)
  - Oliguria [Recovered/Resolved]
  - Renal impairment [Recovered/Resolved]
  - Blood potassium increased [Recovered/Resolved]

NARRATIVE: CASE EVENT DATE: 20210622
